FAERS Safety Report 5395437-0 (Version None)
Quarter: 2007Q3

REPORT INFORMATION
  Report Type: 
  Country: None (occurrence: None)
  Receive Date: 20070724
  Receipt Date: 20070718
  Transmission Date: 20080115
  Serious: Yes (Other)
  Sender: FDA-Public Use
  Company Number: A0498850A

PATIENT
  Age: 58 Year
  Sex: Female

DRUGS (7)
  1. PAXIL [Suspect]
     Indication: DEPRESSION
     Dosage: 10MG PER DAY
     Route: 048
     Dates: start: 19990101
  2. PAROXETINE [Suspect]
     Indication: DEPRESSION
     Dosage: 5MG PER DAY
     Route: 048
     Dates: start: 20040217
  3. PAROXETINE [Suspect]
  4. DIOVAN HCT [Concomitant]
  5. NORVASC [Concomitant]
  6. PEPTO BISMOL [Concomitant]
  7. DEPAKOTE [Concomitant]

REACTIONS (17)
  - ALOPECIA [None]
  - ANXIETY [None]
  - DIARRHOEA [None]
  - DRUG INEFFECTIVE [None]
  - DRY MOUTH [None]
  - FEELING DRUNK [None]
  - HAIR GROWTH ABNORMAL [None]
  - HIRSUTISM [None]
  - HYPERHIDROSIS [None]
  - INSOMNIA [None]
  - MANIA [None]
  - MOBILITY DECREASED [None]
  - NAUSEA [None]
  - NEGATIVE THOUGHTS [None]
  - SOMNOLENCE [None]
  - VENOUS STASIS [None]
  - WEIGHT INCREASED [None]
